FAERS Safety Report 20097189 (Version 1)
Quarter: 2021Q4

REPORT INFORMATION
  Report Type: Spontaneous
  Country: US (occurrence: US)
  Receive Date: 20211122
  Receipt Date: 20211122
  Transmission Date: 20220303
  Serious: Yes (Life-Threatening, Other)
  Sender: FDA-Public Use
  Company Number: US-GLAXOSMITHKLINE-US2021238314

PATIENT
  Sex: Female

DRUGS (1)
  1. ZYBAN [Suspect]
     Active Substance: BUPROPION HYDROCHLORIDE
     Indication: Product used for unknown indication
     Dosage: UNK

REACTIONS (2)
  - Apparent death [Unknown]
  - Urticaria [Unknown]

NARRATIVE: CASE EVENT DATE: 19970101
